FAERS Safety Report 13088420 (Version 1)
Quarter: 2017Q1

REPORT INFORMATION
  Report Type: Spontaneous
  Country: US (occurrence: US)
  Receive Date: 20170104
  Receipt Date: 20170104
  Transmission Date: 20170428
  Serious: Yes (Disabling)
  Sender: FDA-Public Use
  Company Number: None

PATIENT
  Age: 61 Year
  Sex: Female
  Weight: 54 kg

DRUGS (15)
  1. ZYFLAMEND [Concomitant]
  2. FLAXSEED [Concomitant]
     Active Substance: FLAX SEED
  3. MULTI VITAMIN [Concomitant]
     Active Substance: VITAMINS
  4. VITAMIN B12 [Concomitant]
     Active Substance: CYANOCOBALAMIN
  5. COLLAGEN [Concomitant]
     Active Substance: COLLAGEN
  6. ZINC. [Concomitant]
     Active Substance: ZINC
  7. RESVERATROL [Concomitant]
     Active Substance: RESVERATROL
  8. POTASSIUM [Concomitant]
     Active Substance: POTASSIUM
  9. VITAMIN C [Concomitant]
     Active Substance: ASCORBIC ACID
  10. CALCIUM [Concomitant]
     Active Substance: CALCIUM
  11. APPLE EXTRACT [Concomitant]
  12. BREO ELLIPTA [Suspect]
     Active Substance: FLUTICASONE FUROATE\VILANTEROL TRIFENATATE
     Indication: ASTHMA
     Dosage: ?          OTHER STRENGTH:MCG;QUANTITY:1 PUFF(S);?
     Route: 055
     Dates: start: 20160512, end: 20161201
  13. VITAMIN D3 [Concomitant]
     Active Substance: CHOLECALCIFEROL
  14. BIOTIN [Concomitant]
     Active Substance: BIOTIN
  15. COQ10 [Concomitant]
     Active Substance: UBIDECARENONE

REACTIONS (1)
  - Osteoarthritis [None]

NARRATIVE: CASE EVENT DATE: 20160601
